FAERS Safety Report 5313302-1 (Version None)
Quarter: 2007Q2

REPORT INFORMATION
  Report Type: 
  Country: None (occurrence: None)
  Receive Date: 20070501
  Receipt Date: 20070423
  Transmission Date: 20071010
  Serious: Yes (Other)
  Sender: FDA-Public Use
  Company Number: PHEH2007US06501

PATIENT

DRUGS (1)
  1. ZELNORM [Suspect]
     Indication: IRRITABLE BOWEL SYNDROME
     Dosage: 6 MG, BID
     Route: 048
     Dates: start: 20030301

REACTIONS (3)
  - CORONARY ARTERIAL STENT INSERTION [None]
  - DYSPEPSIA [None]
  - MYOCARDIAL INFARCTION [None]
